FAERS Safety Report 8214630-2 (Version None)
Quarter: 2012Q1

REPORT INFORMATION
  Report Type: 
  Country: None (occurrence: None)
  Receive Date: 20120316
  Receipt Date: 20120307
  Transmission Date: 20120608
  Serious: Yes (Hospitalization)
  Sender: FDA-Public Use
  Company Number: US-BAYER-2011-096128

PATIENT
  Age: 24 Year
  Sex: Female

DRUGS (9)
  1. LORAZEPAM [Concomitant]
     Indication: ANXIETY
  2. YAZ [Suspect]
     Dosage: UNK
     Route: 048
     Dates: start: 20090709, end: 20091017
  3. YASMIN [Suspect]
     Dosage: UNK
     Route: 048
     Dates: start: 20090709, end: 20091017
  4. PERCOCET [Concomitant]
     Indication: ANALGESIC THERAPY
  5. PRILOSEC [Concomitant]
     Dosage: 20 MG, UNK
     Route: 048
     Dates: start: 20091017
  6. MORPHINE SULFATE [Concomitant]
  7. CELEXA [Concomitant]
     Dosage: 40 MG, ONCE
     Dates: start: 20091017
  8. DROSPIRENONE AND ETHINYL ESTRADIOL [Suspect]
     Dosage: UNK
     Route: 048
     Dates: start: 20090709, end: 20091017
  9. DEPO-PROVERA [Concomitant]

REACTIONS (6)
  - EMOTIONAL DISTRESS [None]
  - PAIN [None]
  - PULMONARY EMBOLISM [None]
  - GENERAL PHYSICAL HEALTH DETERIORATION [None]
  - INJURY [None]
  - ANXIETY [None]
